FAERS Safety Report 8847430 (Version 2)
Quarter: 2012Q4

REPORT INFORMATION
  Report Type: 
  Country: US (occurrence: US)
  Receive Date: 20121018
  Receipt Date: 20121130
  Transmission Date: 20130627
  Serious: Yes (Other)
  Sender: FDA-Public Use
  Company Number: US-ASTRAZENECA-2012SE77576

PATIENT
  Age: 65 Year
  Sex: Female
  Weight: 86.2 kg

DRUGS (4)
  1. SYMBICORT [Suspect]
     Indication: CHRONIC OBSTRUCTIVE PULMONARY DISEASE
     Dosage: 160/4.5 2 PUFFS BID
     Route: 055
     Dates: start: 2011
  2. DILTIAZEM [Concomitant]
     Indication: CARDIAC DISORDER
     Route: 048
  3. LOSARTAN [Concomitant]
     Indication: HYPERTENSION
     Route: 048
  4. XANAX [Concomitant]
     Indication: ANXIETY
     Route: 048

REACTIONS (4)
  - Fall [Recovered/Resolved]
  - Hip fracture [Recovered/Resolved]
  - Laryngitis [Unknown]
  - Drug dose omission [Unknown]
